FAERS Safety Report 17464915 (Version 2)
Quarter: 2020Q1

REPORT INFORMATION
  Report Type: Report from Study
  Country: US (occurrence: US)
  Receive Date: 20200226
  Receipt Date: 20200306
  Transmission Date: 20200409
  Serious: Yes (Hospitalization)
  Sender: FDA-Public Use
  Company Number: US-SUN PHARMACEUTICAL INDUSTRIES LTD-2020R1-237536

PATIENT
  Age: 60 Year
  Sex: Female

DRUGS (1)
  1. TILDRAKIZUMAB [Suspect]
     Active Substance: TILDRAKIZUMAB
     Indication: PSORIASIS
     Dosage: UNK
     Route: 065
     Dates: start: 20200205

REACTIONS (4)
  - Cellulitis [Unknown]
  - Immunodeficiency [Unknown]
  - Prescription drug used without a prescription [Unknown]
  - Malaise [Unknown]

NARRATIVE: CASE EVENT DATE: 202002
